FAERS Safety Report 25858216 (Version 2)
Quarter: 2025Q4

REPORT INFORMATION
  Report Type: Report from Study
  Country: CN (occurrence: CN)
  Receive Date: 20250929
  Receipt Date: 20251113
  Transmission Date: 20260117
  Serious: No
  Sender: ALEXION PHARMACEUTICALS
  Company Number: CN-ASTRAZENECA-202503GLO012467CN

PATIENT
  Age: 62 Year
  Sex: Male

DRUGS (8)
  1. OSIMERTINIB [Suspect]
     Active Substance: OSIMERTINIB
     Indication: Non-small cell lung cancer
     Dosage: 80 MILLIGRAM, QD
     Dates: start: 20240912
  2. MANNITOL [Concomitant]
     Active Substance: MANNITOL
     Indication: Product used for unknown indication
     Dosage: UNK
     Route: 065
     Dates: start: 20240803, end: 20240807
  3. METHYLPREDNISOLONE SODIUM SUCCINATE [Concomitant]
     Active Substance: METHYLPREDNISOLONE SODIUM SUCCINATE
     Indication: Product used for unknown indication
     Dosage: UNK
     Route: 065
     Dates: start: 20240803, end: 20240807
  4. FOLIC ACID [Concomitant]
     Active Substance: FOLIC ACID
     Indication: Prophylaxis
     Dosage: UNK
     Route: 065
     Dates: start: 20240805, end: 20240807
  5. CITICOLINE SODIUM [Concomitant]
     Active Substance: CITICOLINE SODIUM
     Indication: Product used for unknown indication
     Dosage: UNK
     Route: 065
     Dates: start: 20240807, end: 20240812
  6. CEFUROXIME SODIUM [Concomitant]
     Active Substance: CEFUROXIME SODIUM
     Indication: Prophylaxis
     Dosage: UNK
     Route: 065
     Dates: start: 20240813, end: 20240814
  7. OXIRACETAM [Concomitant]
     Active Substance: OXIRACETAM
     Indication: Prophylaxis
     Dosage: UNK
     Route: 065
     Dates: start: 20240813, end: 20240828
  8. VITAMIN B12 [Concomitant]
     Active Substance: CYANOCOBALAMIN
     Indication: Nutritional supplementation
     Dosage: UNK
     Route: 065
     Dates: start: 20240805, end: 20240805

REACTIONS (2)
  - White blood cell count decreased [Recovered/Resolved]
  - Platelet count decreased [Recovered/Resolved]

NARRATIVE: CASE EVENT DATE: 20241213
